FAERS Safety Report 4355263-8 (Version None)
Quarter: 2004Q2

REPORT INFORMATION
  Report Type: 
  Country: None (occurrence: None)
  Receive Date: 20040504
  Receipt Date: 20040415
  Transmission Date: 20050107
  Serious: Yes (Other)
  Sender: FDA-Public Use
  Company Number: B0329506A

PATIENT
  Age: 14 Year
  Sex: Male

DRUGS (4)
  1. CHLORAMBUCIL (FORMULATION UNKNOWN) (CHLORAMBUCIL) [Suspect]
     Indication: JUVENILE ARTHRITIS
  2. METHOTREXATE [Suspect]
     Indication: JUVENILE ARTHRITIS
  3. CYCLOPHOSPHAMIDE [Suspect]
     Indication: JUVENILE ARTHRITIS
  4. CORTISONE (FORMULATION UNKNOWN) (CORTISONE) [Suspect]
     Indication: JUVENILE ARTHRITIS

REACTIONS (11)
  - ACUTE MYELOID LEUKAEMIA [None]
  - ANAEMIA [None]
  - ARTHRALGIA [None]
  - CHROMOSOMAL MUTATION [None]
  - EXANTHEM [None]
  - INFECTION [None]
  - MULTI-ORGAN FAILURE [None]
  - MYELODYSPLASTIC SYNDROME [None]
  - SEPSIS [None]
  - STEM CELL TRANSPLANT [None]
  - THROMBOCYTOPENIA [None]
